APPROVED DRUG PRODUCT: ARGATROBAN
Active Ingredient: ARGATROBAN
Strength: 50MG/50ML (1MG/ML)
Dosage Form/Route: INJECTABLE;INJECTION
Application: A217848 | Product #001 | TE Code: AP
Applicant: GLAND PHARMA LTD
Approved: Jul 31, 2023 | RLD: No | RS: No | Type: RX